FAERS Safety Report 13226812 (Version 1)
Quarter: 2017Q1

REPORT INFORMATION
  Report Type: Report from Study
  Country: IT (occurrence: IT)
  Receive Date: 20170213
  Receipt Date: 20170213
  Transmission Date: 20170428
  Serious: Yes (Hospitalization)
  Sender: FDA-Public Use
  Company Number: IT-SEATTLE GENETICS-2016SGN02115

PATIENT

DRUGS (29)
  1. FONDAPARINUX [Concomitant]
     Active Substance: FONDAPARINUX
     Indication: THROMBOSIS PROPHYLAXIS
     Dosage: 2.5 MG, UNK
     Route: 065
     Dates: start: 20151110, end: 20160119
  2. ONDANSETRON [Concomitant]
     Active Substance: ONDANSETRON
     Indication: PROPHYLAXIS OF NAUSEA AND VOMITING
     Dosage: 8 MG, UNK
     Route: 065
     Dates: start: 20160120
  3. DARILIN [Concomitant]
     Dosage: 1800 MG, UNK
     Dates: start: 20160326, end: 20160408
  4. TRIMETON [Concomitant]
     Active Substance: CHLORPHENIRAMINE MALEATE
     Indication: PROPHYLAXIS
     Dosage: 10 MG, UNK
     Route: 065
     Dates: start: 20151230
  5. PANTOPRAZOLE [Concomitant]
     Active Substance: PANTOPRAZOLE SODIUM
     Indication: PROPHYLAXIS
     Dosage: 40 MG, UNK
     Route: 065
     Dates: start: 20150917
  6. G-CSF [Concomitant]
     Active Substance: GRANULOCYTE COLONY-STIMULATING FACTOR NOS
     Indication: NEUTROPENIA
     Dosage: UNK
     Route: 065
     Dates: start: 20160130
  7. ACICLOVIR [Concomitant]
     Active Substance: ACYCLOVIR
     Indication: INFECTION PROPHYLAXIS
     Dosage: 1600 MG, UNK
     Route: 065
     Dates: start: 20150920, end: 20160122
  8. METILPREDNISOLONE [Concomitant]
     Active Substance: METHYLPREDNISOLONE
     Indication: PROPHYLAXIS
     Dosage: 100 MG, UNK
     Route: 065
     Dates: start: 20151230
  9. PARACETAMOL [Concomitant]
     Active Substance: ACETAMINOPHEN
     Indication: PROPHYLAXIS
     Dosage: 750 MG, UNK
     Route: 065
     Dates: start: 20151230, end: 20151230
  10. BACTRIM [Concomitant]
     Active Substance: SULFAMETHOXAZOLE\TRIMETHOPRIM
     Dosage: UNK
     Route: 065
     Dates: start: 20160226
  11. LEVOFLOXACIN. [Concomitant]
     Active Substance: LEVOFLOXACIN
     Indication: DIARRHOEA
     Dosage: UNK
     Route: 065
     Dates: start: 20160122, end: 20160205
  12. LEVOFLOXACIN. [Concomitant]
     Active Substance: LEVOFLOXACIN
     Dosage: 500 MG, UNK
     Route: 065
     Dates: start: 20160318, end: 20160324
  13. DARILIN [Concomitant]
     Indication: CYTOMEGALOVIRUS INFECTION
     Dosage: 1800 MG, UNK
     Route: 065
     Dates: start: 20160206, end: 20160219
  14. FLUCONAZOLE. [Concomitant]
     Active Substance: FLUCONAZOLE
     Indication: ORAL CANDIDIASIS
     Dosage: 200 MG, UNK
     Route: 065
     Dates: start: 20160318, end: 20160324
  15. PARACETAMOL [Concomitant]
     Active Substance: ACETAMINOPHEN
     Dosage: 100 UNK, UNK
     Dates: start: 20160120
  16. G-CSF [Concomitant]
     Active Substance: GRANULOCYTE COLONY-STIMULATING FACTOR NOS
     Dosage: UNK
     Dates: start: 20160319, end: 20160321
  17. CALCIUM SANDOZ                     /01576101/ [Concomitant]
     Dosage: UNK
     Route: 065
     Dates: start: 20160129
  18. BRENTUXIMAB VEDOTIN [Suspect]
     Active Substance: BRENTUXIMAB VEDOTIN
     Indication: PERIPHERAL T-CELL LYMPHOMA UNSPECIFIED
     Dosage: 1.8 UNK, UNK
     Route: 042
     Dates: start: 20151230, end: 20160314
  19. ZOFRAN [Concomitant]
     Active Substance: ONDANSETRON HYDROCHLORIDE
     Indication: PROPHYLAXIS
     Dosage: 8 UNK, UNK
     Route: 065
     Dates: start: 20160120, end: 20160408
  20. ACICLOVIR [Concomitant]
     Active Substance: ACYCLOVIR
     Dosage: 1600 MG, UNK
     Route: 065
     Dates: start: 20160303, end: 20160329
  21. BACTRIM [Concomitant]
     Active Substance: SULFAMETHOXAZOLE\TRIMETHOPRIM
     Indication: INFECTION PROPHYLAXIS
     Dosage: UNK
     Route: 065
     Dates: start: 20150920, end: 20160122
  22. ONDANSETRON [Concomitant]
     Active Substance: ONDANSETRON
     Dosage: 8 MG, UNK
     Route: 065
     Dates: start: 20160120, end: 20160408
  23. G-CSF [Concomitant]
     Active Substance: GRANULOCYTE COLONY-STIMULATING FACTOR NOS
     Dosage: UNK
     Route: 065
     Dates: start: 20160228, end: 20160303
  24. BENDAMUSTINE HYDROCHLORIDE. [Suspect]
     Active Substance: BENDAMUSTINE HYDROCHLORIDE
     Indication: PERIPHERAL T-CELL LYMPHOMA UNSPECIFIED
     Dosage: 90 UNK, UNK
     Route: 042
     Dates: start: 20151230, end: 20160315
  25. ZOFRAN [Concomitant]
     Active Substance: ONDANSETRON HYDROCHLORIDE
     Indication: PROPHYLAXIS OF NAUSEA AND VOMITING
     Dosage: 8 MG, UNK
     Route: 065
     Dates: start: 20151230
  26. KCL RETARD ZYMA [Concomitant]
     Active Substance: POTASSIUM CHLORIDE
     Dosage: UNK
     Route: 065
     Dates: start: 20160129
  27. FONDAPARINUX [Concomitant]
     Active Substance: FONDAPARINUX
     Dosage: 2.5 MG, UNK
     Route: 065
     Dates: start: 20160205, end: 20160318
  28. LEVOFLOXACIN. [Concomitant]
     Active Substance: LEVOFLOXACIN
     Indication: INFECTION PROPHYLAXIS
     Dosage: 500 MG, UNK
     Route: 065
     Dates: start: 20160226, end: 20160307
  29. EPOETIN ZETA [Concomitant]
     Active Substance: ERYTHROPOIETIN
     Indication: ANAEMIA PROPHYLAXIS
     Dosage: UNK
     Route: 065
     Dates: start: 20160210

REACTIONS (1)
  - Cytomegalovirus infection [Recovered/Resolved]

NARRATIVE: CASE EVENT DATE: 20160408
